FAERS Safety Report 4788062-3 (Version None)
Quarter: 2005Q4

REPORT INFORMATION
  Report Type: 
  Country: None (occurrence: None)
  Receive Date: 20051003
  Receipt Date: 20050919
  Transmission Date: 20060501
  Serious: Yes (Hospitalization)
  Sender: FDA-Public Use
  Company Number: GXKR2005DE01656

PATIENT
  Age: 66 Year
  Sex: Male
  Weight: 67 kg

DRUGS (6)
  1. AMIODARONE HCL [Suspect]
     Indication: ATRIAL FIBRILLATION
     Dosage: 200 MG, QD, ORAL
     Route: 048
  2. PHENPROCOUMON (PHENPROCOUMON) [Concomitant]
  3. GLIQUIDONE (GLIQUIDONE) [Concomitant]
  4. ATORVASTATIN CALCIUM [Concomitant]
  5. ENALAPRIL MALEATE [Concomitant]
  6. TORSEMIDE [Concomitant]

REACTIONS (9)
  - BLOOD COUNT ABNORMAL [None]
  - BLOOD CREATININE INCREASED [None]
  - BLOOD UREA INCREASED [None]
  - CHOLESTASIS [None]
  - HAEMATOCRIT DECREASED [None]
  - HAEMOGLOBIN DECREASED [None]
  - HEPATOTOXICITY [None]
  - LEUKOPENIA [None]
  - SERUM FERRITIN INCREASED [None]
